FAERS Safety Report 25514464 (Version 1)
Quarter: 2025Q3

REPORT INFORMATION
  Report Type: Spontaneous
  Country: US (occurrence: US)
  Receive Date: 20250703
  Receipt Date: 20250703
  Transmission Date: 20251020
  Serious: No
  Sender: RADIUS PHARM
  Company Number: US-RADIUS HEALTH INC.-2025US000216

PATIENT
  Sex: Female

DRUGS (1)
  1. TYMLOS [Suspect]
     Active Substance: ABALOPARATIDE
     Indication: Product used for unknown indication

REACTIONS (5)
  - Constipation [Unknown]
  - Diarrhoea [Unknown]
  - Flatulence [Unknown]
  - Anal incontinence [Unknown]
  - Faecaloma [Unknown]

NARRATIVE: CASE EVENT DATE: 20240101
